FAERS Safety Report 7807912-7 (Version None)
Quarter: 2011Q4

REPORT INFORMATION
  Report Type: 
  Country: None (occurrence: None)
  Receive Date: 20111011
  Receipt Date: 20111007
  Transmission Date: 20120403
  Serious: Yes (Hospitalization)
  Sender: FDA-Public Use
  Company Number: JP-ABBOTT-11P-087-0713204-00

PATIENT
  Sex: Male
  Weight: 46 kg

DRUGS (20)
  1. PREDNISOLONE [Concomitant]
     Indication: CROHN'S DISEASE
     Route: 048
     Dates: start: 20101101, end: 20110201
  2. CLOSTRIDIUM BUTYRICUM [Concomitant]
     Indication: PRODUCT USED FOR UNKNOWN INDICATION
     Route: 048
  3. HUMIRA [Suspect]
     Route: 058
     Dates: start: 20100906, end: 20110228
  4. CLARITHROMYCIN [Concomitant]
     Indication: INFECTION PROPHYLAXIS
     Route: 048
     Dates: start: 20110208
  5. HUMIRA [Suspect]
     Indication: CROHN'S DISEASE
     Dates: start: 20100809, end: 20100809
  6. LANSOPRAZOLE [Concomitant]
     Indication: GASTRIC DISORDER
  7. HUMIRA [Suspect]
     Dates: start: 20100823, end: 20100823
  8. AZATHIOPRINE [Concomitant]
     Indication: CROHN'S DISEASE
     Route: 048
     Dates: start: 20100118, end: 20110201
  9. CODEINE PHOSPHATE HYDRATE [Concomitant]
     Indication: PROPHYLAXIS AGAINST DIARRHOEA
     Route: 048
  10. HUMIRA [Suspect]
  11. PREDNISOLONE [Concomitant]
     Route: 048
     Dates: start: 20110202
  12. CODEINE PHOSPHATE HYDRATE [Concomitant]
  13. ALENDRONATE SODIUM [Concomitant]
     Indication: PRODUCT USED FOR UNKNOWN INDICATION
     Route: 048
     Dates: start: 20110201
  14. SULFAMETHOXAZOLE AND TRIMETHOPRIM [Concomitant]
     Indication: INFECTION PROPHYLAXIS
     Route: 048
     Dates: start: 20110311
  15. LANSOPRAZOLE [Concomitant]
     Indication: GASTROINTESTINAL MUCOSAL DISORDER
     Route: 048
     Dates: start: 20091122
  16. OFLOXACIN [Concomitant]
     Indication: INFECTION PROPHYLAXIS
     Dates: start: 20110224, end: 20110310
  17. HUMIRA [Suspect]
  18. MESALAMINE [Concomitant]
     Indication: CROHN'S DISEASE
     Route: 048
     Dates: start: 20100116
  19. AZATHIOPRINE [Concomitant]
     Dosage: ALTERNATE-DAY DOSING
     Route: 048
     Dates: start: 20110202
  20. LANSOPRAZOLE [Concomitant]
     Indication: PROPHYLAXIS

REACTIONS (2)
  - HAEMOPTYSIS [None]
  - PYREXIA [None]
